FAERS Safety Report 5830097-3 (Version None)
Quarter: 2008Q3

REPORT INFORMATION
  Report Type: 
  Country: None (occurrence: None)
  Receive Date: 20080801
  Receipt Date: 20080723
  Transmission Date: 20090109
  Serious: Yes (Other)
  Sender: FDA-Public Use
  Company Number: JP-JNJFOC-20080706698

PATIENT
  Sex: Male
  Weight: 51.6 kg

DRUGS (8)
  1. DOXIL [Suspect]
     Route: 042
  2. DOXIL [Suspect]
     Route: 042
  3. DOXIL [Suspect]
     Route: 042
  4. DOXIL [Suspect]
     Route: 042
  5. DOXIL [Suspect]
     Route: 042
  6. DOXIL [Suspect]
     Indication: KAPOSI'S SARCOMA
     Route: 042
  7. EPIVIR [Concomitant]
     Indication: HIV INFECTION
     Route: 048
  8. KALETRA [Concomitant]
     Indication: HIV INFECTION
     Route: 048

REACTIONS (9)
  - ALOPECIA [None]
  - ANAEMIA [None]
  - BLOOD LACTATE DEHYDROGENASE INCREASED [None]
  - HYPERTRIGLYCERIDAEMIA [None]
  - HYPOALBUMINAEMIA [None]
  - LEUKOPENIA [None]
  - MALAISE [None]
  - NAUSEA [None]
  - PLATELET COUNT DECREASED [None]
